FAERS Safety Report 12362887 (Version 2)
Quarter: 2020Q1

REPORT INFORMATION
  Report Type: Spontaneous
  Country: US (occurrence: US)
  Receive Date: 20160512
  Receipt Date: 20200110
  Transmission Date: 20200409
  Serious: No
  Sender: FDA-Public Use
  Company Number: US-UCBSA-2015006365

PATIENT
  Age: 50 Year
  Sex: Female
  Weight: 97.51 kg

DRUGS (2)
  1. CIMZIA [Suspect]
     Active Substance: CERTOLIZUMAB PEGOL
     Dosage: RECEIVED 200MG OF CERTOLIZUMAB INSTEAD OF 400MG EVERY 4 WEEKS
     Dates: start: 20150331
  2. CIMZIA [Suspect]
     Active Substance: CERTOLIZUMAB PEGOL
     Indication: RHEUMATOID ARTHRITIS
     Dosage: 400 MG, MONTHLY (QM)
     Dates: start: 201406, end: 20150303

REACTIONS (3)
  - Inappropriate schedule of product administration [Unknown]
  - Product container issue [Unknown]
  - Carpal tunnel syndrome [Unknown]

NARRATIVE: CASE EVENT DATE: 201406
